FAERS Safety Report 8575951 (Version 4)
Quarter: 2013Q4

REPORT INFORMATION
  Report Type: Spontaneous
  Country: US (occurrence: US)
  Receive Date: 20120523
  Receipt Date: 20131018
  Transmission Date: 20140711
  Serious: Yes (Hospitalization, Other)
  Sender: FDA-Public Use
  Company Number: US-PFIZER INC-2012120079

PATIENT
  Age: 57 Year
  Sex: Male

DRUGS (9)
  1. ATENOLOL [Suspect]
     Dosage: 50 MG, DAILY
     Route: 048
  2. GABAPENTIN [Suspect]
     Dosage: 300 MG, HS
     Route: 048
  3. SPIRONOLACTONE [Suspect]
     Dosage: 25 MG, DAILY
     Route: 048
  4. SPIRONOLACTONE [Suspect]
     Dosage: 50 MG, DAILY
     Route: 048
     Dates: start: 20120216
  5. TRAMADOL [Suspect]
     Dosage: 50 MG, DAILY
     Route: 048
  6. LISINOPRIL [Suspect]
     Dosage: 10 MG, DAILY
     Route: 048
  7. LISINOPRIL [Suspect]
     Dosage: 20 MG, DAILY
     Route: 048
     Dates: start: 20120127
  8. FLEXERIL [Suspect]
     Dosage: 10 MG, DAILY
     Route: 048
  9. NEXIUM [Suspect]
     Dosage: 40 MG, DAILY
     Route: 048

REACTIONS (27)
  - Pancytopenia [Unknown]
  - Hepatitis C [Unknown]
  - Post procedural complication [Unknown]
  - Bone marrow toxicity [Unknown]
  - Alcohol poisoning [Unknown]
  - Portal hypertension [Unknown]
  - Cirrhosis alcoholic [Unknown]
  - Osteoarthritis [Unknown]
  - Varices oesophageal [Unknown]
  - Obesity [Unknown]
  - Alcohol abuse [Unknown]
  - Sleep apnoea syndrome [Unknown]
  - Nicotine dependence [Unknown]
  - Diverticulum [Unknown]
  - Cholelithiasis [Unknown]
  - Erectile dysfunction [Unknown]
  - Gastrooesophageal reflux disease [Unknown]
  - Hypertension [Unknown]
  - Weight increased [Unknown]
  - Thirst [Unknown]
  - Liver disorder [Unknown]
  - Decreased appetite [Unknown]
  - Arthralgia [Unknown]
  - Hypoaesthesia [Unknown]
  - Blood glucose increased [Unknown]
  - Oedema peripheral [Unknown]
  - Venous insufficiency [Unknown]
